FAERS Safety Report 15314210 (Version 2)
Quarter: 2018Q3

REPORT INFORMATION
  Report Type: Spontaneous
  Country: US (occurrence: US)
  Receive Date: 20180824
  Receipt Date: 20180913
  Transmission Date: 20181010
  Serious: No
  Sender: FDA-Public Use
  Company Number: US-PFIZER INC-2017453398

PATIENT
  Age: 63 Year
  Sex: Female
  Weight: 67 kg

DRUGS (2)
  1. XELJANZ [Suspect]
     Active Substance: TOFACITINIB CITRATE
     Indication: RHEUMATOID ARTHRITIS
     Dosage: 5 MG, 2X/DAY
     Route: 048
     Dates: end: 201807
  2. PREDNISONE. [Concomitant]
     Active Substance: PREDNISONE
     Dosage: 4 MG, UNK

REACTIONS (2)
  - Nerve compression [Recovering/Resolving]
  - Neuralgia [Recovering/Resolving]

NARRATIVE: CASE EVENT DATE: 2018
